FAERS Safety Report 22049859 (Version 1)
Quarter: 2023Q1

REPORT INFORMATION
  Report Type: Report from Study
  Country: DE (occurrence: DE)
  Receive Date: 20230301
  Receipt Date: 20230301
  Transmission Date: 20230417
  Serious: Yes (Other)
  Sender: FDA-Public Use
  Company Number: DE-ROCHE-3287406

PATIENT
  Age: 47 Year
  Sex: Female
  Weight: 89.2 kg

DRUGS (8)
  1. TRASTUZUMAB [Suspect]
     Active Substance: TRASTUZUMAB
     Indication: Breast cancer
     Dosage: 594 MG, LAST RECENT DOSE PRIOR TO AE
     Dates: start: 20211202, end: 20211202
  2. TRASTUZUMAB [Suspect]
     Active Substance: TRASTUZUMAB
     Dosage: 594 MG, EVERY 3 WEEKS
     Route: 065
     Dates: start: 20211202
  3. CARBOPLATIN [Suspect]
     Active Substance: CARBOPLATIN
     Indication: Breast cancer
     Dosage: UNK, EVERY 3 WEEKS
     Route: 065
     Dates: start: 20211111, end: 20220317
  4. CARBOPLATIN [Suspect]
     Active Substance: CARBOPLATIN
     Dosage: 849.3 MG, LAST RECENT DOSE PRIOR TO AE
     Route: 065
     Dates: start: 20211202
  5. PERTUZUMAB [Suspect]
     Active Substance: PERTUZUMAB
     Indication: Breast cancer
     Dosage: 420 MG, LAST RECENT DOSE PRIOR TO AE
     Dates: start: 20211202, end: 20211202
  6. PERTUZUMAB [Suspect]
     Active Substance: PERTUZUMAB
     Dosage: 420 MG, EVERY 3 WEEKS
     Route: 065
     Dates: start: 20211202
  7. DOCETAXEL [Suspect]
     Active Substance: DOCETAXEL
     Indication: Breast cancer
     Dosage: 162.75 MG, EVERY 3 WEEKS
     Route: 065
     Dates: start: 20211111, end: 20220317
  8. DOCETAXEL [Suspect]
     Active Substance: DOCETAXEL
     Dosage: 162.75 MG, LAST RECENT DOSE PRIOR TO AE
     Dates: start: 20211202

REACTIONS (1)
  - Polyneuropathy [Recovering/Resolving]

NARRATIVE: CASE EVENT DATE: 20211227
